FAERS Safety Report 7097315-8 (Version None)
Quarter: 2010Q4

REPORT INFORMATION
  Report Type: 
  Country: None (occurrence: None)
  Receive Date: 20101111
  Receipt Date: 20100315
  Transmission Date: 20110411
  Serious: No
  Sender: FDA-Public Use
  Company Number: US-KINGPHARMUSA00001-K201000305

PATIENT
  Sex: Male
  Weight: 79.365 kg

DRUGS (7)
  1. LEVOXYL [Suspect]
     Indication: HYPOTHYROIDISM
     Dosage: 50 MCG, QD
     Route: 048
     Dates: end: 20090101
  2. LEVOXYL [Suspect]
     Dosage: 88 MCG, QD
     Route: 048
     Dates: start: 20090101
  3. KLONOPIN [Concomitant]
     Indication: ANXIETY
     Dosage: .5 MG, PRN
  4. VITAMIN B-12 [Concomitant]
     Dosage: UNK
     Route: 060
  5. ASPIRIN [Concomitant]
     Dosage: 81 MG, QD
     Route: 048
  6. QUESTRAN [Concomitant]
     Indication: BLOOD CHOLESTEROL INCREASED
     Dosage: UNK
  7. ZANTAC [Concomitant]
     Indication: REFLUX OESOPHAGITIS
     Dosage: UNK

REACTIONS (2)
  - CHEST PAIN [None]
  - FATIGUE [None]
